FAERS Safety Report 24253023 (Version 1)
Quarter: 2024Q3

REPORT INFORMATION
  Report Type: Spontaneous
  Country: US (occurrence: US)
  Receive Date: 20240827
  Receipt Date: 20240827
  Transmission Date: 20241017
  Serious: No
  Sender: ROCHE
  Company Number: US-ROCHE-10000066540

PATIENT
  Sex: Female
  Weight: 185.0 kg

DRUGS (2)
  1. ACTEMRA [Suspect]
     Active Substance: TOCILIZUMAB
     Indication: Encephalitis autoimmune
     Route: 042
  2. RITUXIMAB [Suspect]
     Active Substance: RITUXIMAB
     Indication: Encephalitis autoimmune
     Dosage: 1 GRAM EVERY 2 WEEKS THEN 1 GRAM EVERY 6 MONTHS THEREAFTER
     Route: 065
     Dates: start: 20231122

REACTIONS (2)
  - Off label use [Unknown]
  - No adverse event [Unknown]
